FAERS Safety Report 10347472 (Version 1)
Quarter: 2014Q3

REPORT INFORMATION
  Report Type: Spontaneous
  Country: FR (occurrence: FR)
  Receive Date: 20140729
  Receipt Date: 20140729
  Transmission Date: 20150326
  Serious: Yes (Hospitalization)
  Sender: FDA-Public Use
  Company Number: FR-BAYER-2014-108228

PATIENT
  Age: 82 Year
  Sex: Male

DRUGS (4)
  1. XELODA [Suspect]
     Active Substance: CAPECITABINE
     Indication: COLON CANCER
     Dosage: UNK
     Route: 042
     Dates: start: 20130911, end: 20131113
  2. STIVARGA [Suspect]
     Active Substance: REGORAFENIB
     Indication: COLON CANCER
     Dosage: UNK
     Route: 048
     Dates: start: 20140409, end: 20140415
  3. AMETYCINE [Suspect]
     Active Substance: MITOMYCIN
     Indication: COLON CANCER
     Dosage: 18.3 MG, 4 CARES
     Route: 042
     Dates: start: 20130911, end: 20131113
  4. XELODA [Suspect]
     Active Substance: CAPECITABINE
     Indication: COLON CANCER
     Dosage: UNK
     Route: 042
     Dates: start: 20140115, end: 20140319

REACTIONS (2)
  - Cardiac failure [Recovered/Resolved]
  - Acute pulmonary oedema [Recovered/Resolved]

NARRATIVE: CASE EVENT DATE: 20140415
